FAERS Safety Report 8758854 (Version 1)
Quarter: 2012Q4

REPORT INFORMATION
  Report Type: 
  Country: DE (occurrence: DE)
  Receive Date: 20120829
  Receipt Date: 20120829
  Transmission Date: 20130627
  Serious: Yes (Hospitalization)
  Sender: FDA-Public Use
  Company Number: PHHY2012DE074202

PATIENT
  Age: 24 Year
  Sex: Male

DRUGS (4)
  1. CERTICAN [Suspect]
     Dosage: 1 mg, BID
     Route: 048
     Dates: start: 2006
  2. DEKRISTOL 20000 [Concomitant]
     Dosage: 20000 mg, every week
     Route: 048
     Dates: start: 2008
  3. CICLOSPORIN [Concomitant]
     Dosage: 75 mg, BID
     Dates: start: 1999
  4. RENVELA [Concomitant]
     Dosage: 800 mg, UNK
     Route: 048
     Dates: start: 2008

REACTIONS (1)
  - Intracardiac thrombus [Unknown]
